FAERS Safety Report 8912112 (Version 9)
Quarter: 2013Q4

REPORT INFORMATION
  Report Type: Report from Study
  Country: US (occurrence: US)
  Receive Date: 20121115
  Receipt Date: 20131127
  Transmission Date: 20140711
  Serious: Yes (Hospitalization)
  Sender: FDA-Public Use
  Company Number: US-PFIZER INC-2012261016

PATIENT
  Age: 57 Year
  Sex: Male
  Weight: 147 kg

DRUGS (5)
  1. TOFACITINIB CITRATE [Suspect]
     Indication: PSORIASIS
     Dosage: 10 MG, 2X/DAY
     Route: 048
     Dates: start: 20111019
  2. TYLENOL EXTRA-STRENGTH [Concomitant]
     Indication: OSTEOARTHRITIS
     Dosage: 1000 MG, AS NEEDED
     Route: 048
     Dates: start: 2011
  3. ASPIRIN [Concomitant]
     Indication: CARDIOVASCULAR EVENT PROPHYLAXIS
     Dosage: 325 MG, 1X/DAY
     Route: 048
     Dates: start: 2010
  4. METFORMIN [Concomitant]
     Indication: TYPE 2 DIABETES MELLITUS
     Dosage: 1000 MG, 1X/DAY
     Route: 048
     Dates: start: 20120612
  5. GLIPIZIDE [Concomitant]
     Indication: TYPE 2 DIABETES MELLITUS
     Dosage: 10 MG, 1X/DAY
     Route: 048
     Dates: start: 20120612, end: 20121011

REACTIONS (2)
  - Subcutaneous abscess [Recovered/Resolved]
  - Staphylococcal skin infection [Recovered/Resolved]
